FAERS Safety Report 4711841-5 (Version None)
Quarter: 2005Q3

REPORT INFORMATION
  Report Type: 
  Country: None (occurrence: None)
  Receive Date: 20050708
  Receipt Date: 20041102
  Transmission Date: 20060218
  Serious: Yes (Other)
  Sender: FDA-Public Use
  Company Number: US-2004-029947

PATIENT
  Age: 35 Year
  Sex: Female
  Weight: 61.2 kg

DRUGS (1)
  1. ULTRAVIST 300 [Suspect]
     Indication: COMPUTERISED TOMOGRAM THORAX
     Dosage: 100 TO 150 ML, 1 DOSE, INTRAVENOUS
     Route: 042
     Dates: start: 20040526, end: 20040526

REACTIONS (2)
  - DIZZINESS [None]
  - DYSPNOEA [None]
